FAERS Safety Report 11350499 (Version 1)
Quarter: 2015Q3

REPORT INFORMATION
  Report Type: Spontaneous
  Country: US (occurrence: None)
  Receive Date: 20150805
  Receipt Date: 20150805
  Transmission Date: 20151125
  Serious: No
  Sender: FDA-Public Use
  Company Number: None

PATIENT
  Age: 18 Year
  Sex: Male

DRUGS (12)
  1. FAMOTIDINE. [Concomitant]
     Active Substance: FAMOTIDINE
  2. NYSTATIN/ZINC/HYDROCORTISONE TOPICAL OINTMENT [Concomitant]
  3. FENTANYL. [Concomitant]
     Active Substance: FENTANYL
  4. LACTOBACILLUS GRANULES [Concomitant]
  5. SENNA [Concomitant]
     Active Substance: SENNA LEAF\SENNOSIDES\SENNOSIDES A AND B
  6. VANCOMYCIN [Concomitant]
     Active Substance: VANCOMYCIN
  7. HEPARIN [Concomitant]
     Active Substance: HEPARIN SODIUM
  8. ACETAMINOPHEN. [Concomitant]
     Active Substance: ACETAMINOPHEN
  9. BRIMONIDINE OPTHALMIC [Concomitant]
  10. TIMOLOL OPTHALMIC [Concomitant]
  11. CEFTRIAXONE. [Suspect]
     Active Substance: CEFTRIAXONE
     Indication: PROPHYLAXIS
     Route: 042
     Dates: start: 20141110, end: 20141219
  12. DOCUSATE [Concomitant]
     Active Substance: DOCUSATE

REACTIONS (1)
  - Rash [None]

NARRATIVE: CASE EVENT DATE: 20141119
